FAERS Safety Report 7282862-6 (Version None)
Quarter: 2011Q1

REPORT INFORMATION
  Report Type: 
  Country: None (occurrence: None)
  Receive Date: 20110209
  Receipt Date: 20110207
  Transmission Date: 20110831
  Serious: No
  Sender: FDA-Public Use
  Company Number: US-ROXANE LABORATORIES, INC.-2011-RO-00152RO

PATIENT
  Sex: Female

DRUGS (1)
  1. FLUTICASONE PROPIONATE [Suspect]
     Indication: SINUSITIS
     Route: 045
     Dates: start: 20110201, end: 20110205

REACTIONS (6)
  - HYPOAESTHESIA ORAL [None]
  - GLOSSITIS [None]
  - ORAL DISCOMFORT [None]
  - AGEUSIA [None]
  - OROPHARYNGEAL PAIN [None]
  - ANOSMIA [None]
